FAERS Safety Report 6858382-7 (Version None)
Quarter: 2010Q3

REPORT INFORMATION
  Report Type: 
  Country: None (occurrence: None)
  Receive Date: 20100719
  Receipt Date: 20080206
  Transmission Date: 20110219
  Serious: Yes (Other)
  Sender: FDA-Public Use
  Company Number: US-PFIZER INC-2008012949

PATIENT
  Age: 55 Year
  Sex: Female
  Weight: 74.8 kg

DRUGS (5)
  1. CHANTIX [Suspect]
     Indication: SMOKING CESSATION THERAPY
     Dosage: 1 MG BID EVERY DAY TDD:2 MG
     Dates: start: 20080101, end: 20080206
  2. ACCUPRIL [Concomitant]
  3. NORTRIPTYLINE [Concomitant]
  4. MORPHINE [Concomitant]
  5. PERCOCET [Concomitant]

REACTIONS (3)
  - DRUG ADMINISTRATION ERROR [None]
  - RASH [None]
  - RASH PRURITIC [None]
